FAERS Safety Report 20762284 (Version 1)
Quarter: 2022Q2

REPORT INFORMATION
  Report Type: Spontaneous
  Country: FR (occurrence: FR)
  Receive Date: 20220428
  Receipt Date: 20220428
  Transmission Date: 20220720
  Serious: Yes (Hospitalization)
  Sender: FDA-Public Use
  Company Number: None

PATIENT
  Age: 23 Year
  Sex: Female
  Weight: 35 kg

DRUGS (8)
  1. SERTRALINE HYDROCHLORIDE [Suspect]
     Active Substance: SERTRALINE HYDROCHLORIDE
     Indication: Anorexia nervosa
     Route: 048
     Dates: start: 20210203, end: 20210219
  2. OLANZAPINE [Suspect]
     Active Substance: OLANZAPINE
     Indication: Anorexia nervosa
     Route: 048
     Dates: start: 20210203, end: 20210219
  3. Calcidose [Concomitant]
     Indication: Malnutrition
     Route: 048
     Dates: start: 20210203
  4. FOLIC ACID [Concomitant]
     Active Substance: FOLIC ACID
     Indication: Malnutrition
     Route: 048
     Dates: start: 20210203
  5. VITAMINS [Concomitant]
     Active Substance: VITAMINS
     Indication: Malnutrition
     Route: 048
     Dates: start: 20210203
  6. LOXAPINE [Concomitant]
     Active Substance: LOXAPINE
     Indication: Malnutrition
     Route: 048
     Dates: start: 20210203
  7. NIACINAMIDE [Concomitant]
     Active Substance: NIACINAMIDE
     Indication: Malnutrition
     Route: 048
     Dates: start: 20210203
  8. ZINC GLUCONATE [Concomitant]
     Active Substance: ZINC GLUCONATE
     Indication: Malnutrition
     Route: 048
     Dates: start: 20210203

REACTIONS (1)
  - Hepatic cytolysis [Recovering/Resolving]

NARRATIVE: CASE EVENT DATE: 20210204
